FAERS Safety Report 12078070 (Version 2)
Quarter: 2016Q2

REPORT INFORMATION
  Report Type: Spontaneous
  Country: DE (occurrence: DE)
  Receive Date: 20160215
  Receipt Date: 20160421
  Transmission Date: 20160815
  Serious: Yes (Disabling)
  Sender: FDA-Public Use
  Company Number: DE-ABBVIE-16P-062-1561161-00

PATIENT
  Age: 22 Year
  Sex: Female

DRUGS (2)
  1. ERGENYL [Suspect]
     Active Substance: VALPROIC ACID
     Indication: MYOCLONIC EPILEPSY
     Route: 048
     Dates: start: 1986, end: 1997
  2. TEGRETAL [Concomitant]
     Active Substance: CARBAMAZEPINE
     Indication: PRODUCT USED FOR UNKNOWN INDICATION

REACTIONS (1)
  - Schizoaffective disorder [Unknown]

NARRATIVE: CASE EVENT DATE: 1997
